FAERS Safety Report 21215571 (Version 2)
Quarter: 2022Q4

REPORT INFORMATION
  Report Type: Spontaneous
  Country: US (occurrence: US)
  Receive Date: 20220816
  Receipt Date: 20221111
  Transmission Date: 20230112
  Serious: No
  Sender: FDA-Public Use
  Company Number: US-PFIZER INC-PV202200043299

PATIENT
  Age: 23 Year
  Sex: Female

DRUGS (1)
  1. XELJANZ [Suspect]
     Active Substance: TOFACITINIB CITRATE
     Dosage: UNK
     Dates: start: 202111

REACTIONS (5)
  - COVID-19 [Unknown]
  - Hypersensitivity [Unknown]
  - Urticaria [Unknown]
  - Product dose omission issue [Unknown]
  - Therapeutic product effect delayed [Unknown]
